FAERS Safety Report 25177804 (Version 1)
Quarter: 2025Q2

REPORT INFORMATION
  Report Type: Spontaneous
  Country: GB (occurrence: GB)
  Receive Date: 20250409
  Receipt Date: 20250409
  Transmission Date: 20250717
  Serious: Yes (Other)
  Sender: TEVA
  Company Number: GB-MHRA-TPP42732585C15434210YC1743695687146

PATIENT
  Age: 62 Year
  Sex: Male
  Weight: 94 kg

DRUGS (18)
  1. DOXYCYCLINE [Suspect]
     Active Substance: DOXYCYCLINE
     Indication: Ill-defined disorder
     Dosage: FOR 21 DAYS,100MG CAPSULES
     Route: 048
     Dates: start: 20250310, end: 20250331
  2. EPIMAX EXCETRA [Concomitant]
     Indication: Ill-defined disorder
     Route: 065
     Dates: start: 20250403
  3. BISOPROLOL [Concomitant]
     Active Substance: BISOPROLOL
     Indication: Ill-defined disorder
     Dosage: TAKE ONE TABLET IN THE MORNING
     Route: 065
     Dates: start: 20240925
  4. BUDESONIDE [Concomitant]
     Active Substance: BUDESONIDE
     Indication: Ill-defined disorder
     Dosage: USE ONE AT NIGHT FOR FLARES
     Route: 065
     Dates: start: 20240925
  5. DAPAGLIFLOZIN [Concomitant]
     Active Substance: DAPAGLIFLOZIN
     Indication: Diabetes mellitus
     Dosage: TAKE ONE TABLET ONCE A DAY TO HELP CONTROL DIAB...
     Route: 065
     Dates: start: 20250310
  6. TAMSULOSIN HYDROCHLORIDE [Concomitant]
     Active Substance: TAMSULOSIN HYDROCHLORIDE
     Indication: Hypertonic bladder
     Dosage: TAKE ONE CAPSULE DAILY TO HELP BLADDER SYMPTOMS
     Route: 065
     Dates: start: 20240925
  7. MESALAMINE [Concomitant]
     Active Substance: MESALAMINE
     Indication: Ill-defined disorder
     Route: 065
     Dates: start: 20240925
  8. AMLODIPINE [Concomitant]
     Active Substance: AMLODIPINE BESYLATE
     Indication: Ill-defined disorder
     Dosage: TAKE ONE TABLET EACH DAY
     Route: 065
     Dates: start: 20240925
  9. NITROFURANTOIN [Concomitant]
     Active Substance: NITROFURANTOIN
     Indication: Ill-defined disorder
     Dosage: TAKE ONE CAPSULE TWICE A DAY FOR SEVEN DAYS
     Route: 065
     Dates: start: 20250326, end: 20250402
  10. SITAGLIPTIN [Concomitant]
     Active Substance: SITAGLIPTIN
     Indication: Diabetes mellitus
     Dosage: TAKE ONE TABLET ONCE A DAY TO HELP CONTROL DIAB...
     Route: 065
     Dates: start: 20241125
  11. OLMESARTAN MEDOXOMIL [Concomitant]
     Active Substance: OLMESARTAN MEDOXOMIL
     Indication: Ill-defined disorder
     Dosage: TAKE ONE DAILY
     Route: 065
     Dates: start: 20240925
  12. SERTRALINE [Concomitant]
     Active Substance: SERTRALINE HYDROCHLORIDE
     Indication: Ill-defined disorder
     Dosage: TAKE ONE DAILY
     Route: 065
     Dates: start: 20240925
  13. GLICLAZIDE [Concomitant]
     Active Substance: GLICLAZIDE
     Indication: Diabetes mellitus
     Dosage: TAKE TWO TABS TWICE DAILY TO HELP CONTROL DIABETES
     Route: 065
     Dates: start: 20240925
  14. ATORVASTATIN [Concomitant]
     Active Substance: ATORVASTATIN
     Indication: Ill-defined disorder
     Dosage: TAKE ONE DAILY
     Route: 065
     Dates: start: 20240925
  15. HYDROCORTISONE [Concomitant]
     Active Substance: HYDROCORTISONE
     Indication: Ill-defined disorder
     Route: 065
     Dates: start: 20250403
  16. CLOPIDOGREL [Concomitant]
     Active Substance: CLOPIDOGREL BISULFATE
     Indication: Myocardial infarction
     Dosage: TAKE ONE TABLET EACH DAY TO HELP PREVENT HEART ...
     Route: 065
     Dates: start: 20240925
  17. LANSOPRAZOLE [Concomitant]
     Active Substance: LANSOPRAZOLE
     Indication: Dyspepsia
     Dosage: TAKE ONE CAPSULE EACH DAY TO HELP PREVENT INDIG...
     Route: 065
     Dates: start: 20240925
  18. TOLTERODINE [Concomitant]
     Active Substance: TOLTERODINE
     Indication: Ill-defined disorder
     Dosage: TAKE 2 TABLETS ( 4MG) DAILY FOR BLADDER PROBLEM...
     Route: 065
     Dates: start: 20240925

REACTIONS (1)
  - Photosensitivity reaction [Recovering/Resolving]
